FAERS Safety Report 9984851 (Version 1)
Quarter: 2014Q1

REPORT INFORMATION
  Report Type: Report from Study
  Country: US (occurrence: US)
  Receive Date: 20140307
  Receipt Date: 20140307
  Transmission Date: 20141002
  Serious: No
  Sender: FDA-Public Use
  Company Number: US-ABBVIE-14P-163-1186214-00

PATIENT
  Age: 61 Year
  Sex: Female

DRUGS (10)
  1. HUMIRA [Suspect]
     Indication: PSORIASIS
     Route: 058
     Dates: start: 20130923, end: 20131212
  2. TYLENOL [Concomitant]
     Indication: BLOOD CHOLESTEROL INCREASED
     Dosage: 10/80MG
  3. OCUVITE [Concomitant]
     Indication: EYE DISORDER
  4. BIOTIN [Concomitant]
     Indication: HAIR DISORDER
  5. BIOTIN [Concomitant]
     Indication: SKIN DISORDER
  6. BIOTIN [Concomitant]
     Indication: NAIL DISORDER
  7. FOLIC ACID [Concomitant]
     Indication: PRODUCT USED FOR UNKNOWN INDICATION
  8. METHOTREXATE [Concomitant]
     Indication: PRODUCT USED FOR UNKNOWN INDICATION
     Dosage: 1ST WEEK
  9. METHOTREXATE [Concomitant]
     Dates: start: 20131221
  10. METHOTREXATE [Concomitant]
     Dates: start: 20131228

REACTIONS (1)
  - Psoriasis [Not Recovered/Not Resolved]
